APPROVED DRUG PRODUCT: FLUPHENAZINE DECANOATE
Active Ingredient: FLUPHENAZINE DECANOATE
Strength: 25MG/ML
Dosage Form/Route: INJECTABLE;INJECTION
Application: A075918 | Product #001 | TE Code: AO
Applicant: MYLAN LABORATORIES LTD
Approved: Aug 17, 2001 | RLD: No | RS: No | Type: RX